FAERS Safety Report 7127562-8 (Version None)
Quarter: 2010Q4

REPORT INFORMATION
  Report Type: 
  Country: None (occurrence: None)
  Receive Date: 20101129
  Receipt Date: 20100624
  Transmission Date: 20110411
  Serious: Yes (Other)
  Sender: FDA-Public Use
  Company Number: US-PFIZER INC-2010079825

PATIENT
  Sex: Male
  Weight: 111 kg

DRUGS (1)
  1. VIAGRA [Suspect]
     Indication: DRUG ABUSE
     Dosage: 200 MG, AS NEEDED
     Route: 048
     Dates: start: 20100624

REACTIONS (3)
  - ERECTION INCREASED [None]
  - GENITAL PAIN [None]
  - INCORRECT DOSE ADMINISTERED [None]
